FAERS Safety Report 7866230-1 (Version None)
Quarter: 2011Q4

REPORT INFORMATION
  Report Type: 
  Country: None (occurrence: None)
  Receive Date: 20111028
  Receipt Date: 20110516
  Transmission Date: 20120403
  Serious: No
  Sender: FDA-Public Use
  Company Number: US-GLAXOSMITHKLINE-A0927529A

PATIENT
  Age: 67 Year
  Sex: Female

DRUGS (8)
  1. HUMULIN N [Concomitant]
  2. METFORMIN HCL [Concomitant]
  3. OMEPRAZOLE [Concomitant]
  4. ADVAIR DISKUS 100/50 [Suspect]
     Indication: ASTHMA
     Dosage: 1PUFF TWICE PER DAY
     Route: 055
     Dates: start: 20030101
  5. DIOVAN [Concomitant]
  6. TYLENOL-500 [Concomitant]
     Dosage: 1500MG TWICE PER DAY
  7. HUMULIN R [Concomitant]
  8. ALBUTEROL SULFATE AND IPRATROPIUM BROMIDE [Concomitant]
     Route: 055

REACTIONS (2)
  - DYSPNOEA [None]
  - PRODUCT QUALITY ISSUE [None]
